FAERS Safety Report 6551889-1 (Version None)
Quarter: 2010Q1

REPORT INFORMATION
  Report Type: 
  Country: None (occurrence: None)
  Receive Date: 20100120
  Receipt Date: 20100104
  Transmission Date: 20100710
  Serious: Yes (Other)
  Sender: FDA-Public Use
  Company Number: DSU-2010-00011

PATIENT
  Sex: Male
  Weight: 65.7716 kg

DRUGS (4)
  1. AZOR [Suspect]
     Indication: HYPERTENSION
     Dosage: 10/40MG (QD), PER ORAL
     Route: 048
     Dates: start: 20080101
  2. METOPROLOL (METOPROLOL) 25 MILLIGRAM, TABLET) (METOPROLOL) [Suspect]
     Indication: HYPERTENSION
     Dosage: 50 MG (25 MG, BID), PER ORAL, 50 MG (25 MG, BID), PER ORAL
     Route: 048
     Dates: start: 20080101
  3. AMBIEN [Concomitant]
  4. KLONOPIN (CLONAZEPAM) (CLONAZEPAM) [Concomitant]

REACTIONS (2)
  - BLOOD PRESSURE INCREASED [None]
  - COELIAC DISEASE [None]
